FAERS Safety Report 17435189 (Version 15)
Quarter: 2021Q3

REPORT INFORMATION
  Report Type: Report from Study
  Country: US (occurrence: US)
  Receive Date: 20200219
  Receipt Date: 20210904
  Transmission Date: 20211014
  Serious: Yes (Death, Hospitalization, Other)
  Sender: FDA-Public Use
  Company Number: US-SHIRE-US202006459

PATIENT
  Age: 74 Year
  Sex: Female

DRUGS (10)
  1. KALBITOR [Suspect]
     Active Substance: ECALLANTIDE
     Indication: PRODUCT USED FOR UNKNOWN INDICATION
     Dosage: 30 MILLIGRAM, AS REQ^D
     Route: 058
     Dates: start: 20180511
  2. FIRAZYR [Suspect]
     Active Substance: ICATIBANT ACETATE
     Indication: PRODUCT USED FOR UNKNOWN INDICATION
     Dosage: 30MG/3ML, AS REQUIRED
     Route: 058
     Dates: start: 20130701
  3. FIRAZYR [Suspect]
     Active Substance: ICATIBANT ACETATE
     Dosage: 3ML/30MG, AS REQUIRED
     Route: 058
     Dates: start: 20180527
  4. LANADELUMAB [Suspect]
     Active Substance: LANADELUMAB
     Indication: IMMUNE SYSTEM DISORDER
     Dosage: 300 MILLIGRAM, Q2WEEKS
     Route: 058
     Dates: start: 20191121, end: 20210826
  5. LANADELUMAB [Suspect]
     Active Substance: LANADELUMAB
     Dosage: 2 MILLILITER, Q2WEEKS
     Route: 058
     Dates: start: 20191216
  6. FIRAZYR [Suspect]
     Active Substance: ICATIBANT ACETATE
     Indication: PRODUCT USED FOR UNKNOWN INDICATION
     Dosage: 30MG/3ML, AS REQUIRED
     Route: 058
     Dates: start: 20130701
  7. LANADELUMAB [Suspect]
     Active Substance: LANADELUMAB
     Dosage: 300 MILLIGRAM, Q2WEEKS
     Route: 058
     Dates: start: 20191217
  8. FIRAZYR [Suspect]
     Active Substance: ICATIBANT ACETATE
     Dosage: 3ML/30MG, AS REQUIRED
     Route: 058
     Dates: start: 20180527
  9. LANADELUMAB [Suspect]
     Active Substance: LANADELUMAB
     Dosage: 2 MILLILITER, Q2WEEKS
     Route: 058
     Dates: start: 20191216
  10. LANADELUMAB [Suspect]
     Active Substance: LANADELUMAB
     Dosage: 300 MILLIGRAM, Q2WEEKS
     Route: 058
     Dates: start: 20191216

REACTIONS (13)
  - Spinal fracture [Unknown]
  - Hereditary angioedema [Recovering/Resolving]
  - Product availability issue [Unknown]
  - COVID-19 [Recovered/Resolved]
  - Internal haemorrhage [Recovering/Resolving]
  - Kidney infection [Unknown]
  - Death [Fatal]
  - Cardiac disorder [Unknown]
  - Arterial occlusive disease [Recovering/Resolving]
  - Clostridium difficile infection [Unknown]
  - Fall [Unknown]
  - Insomnia [Not Recovered/Not Resolved]
  - Product dose omission issue [Recovered/Resolved]

NARRATIVE: CASE EVENT DATE: 20200903
